FAERS Safety Report 5422389-7 (Version None)
Quarter: 2007Q3

REPORT INFORMATION
  Report Type: 
  Country: None (occurrence: None)
  Receive Date: 20070820
  Receipt Date: 20070814
  Transmission Date: 20080115
  Serious: Yes (Hospitalization, Other)
  Sender: FDA-Public Use
  Company Number: 2007SP012283

PATIENT
  Age: 16 Year
  Sex: Male
  Weight: 55 kg

DRUGS (13)
  1. TEMODAL [Suspect]
     Indication: ASTROCYTOMA
     Dosage: 300 MG; ; PO, 300 MG; ; PO, 300 MG; ; PO
     Route: 048
     Dates: start: 20070528, end: 20070601
  2. TEMODAL [Suspect]
     Indication: ASTROCYTOMA
     Dosage: 300 MG; ; PO, 300 MG; ; PO, 300 MG; ; PO
     Route: 048
     Dates: start: 20070205
  3. TEMODAL [Suspect]
     Indication: ASTROCYTOMA
     Dosage: 300 MG; ; PO, 300 MG; ; PO, 300 MG; ; PO
     Route: 048
     Dates: start: 20070730
  4. ETOPOSIDE [Suspect]
     Indication: ASTROCYTOMA
     Dosage: 80 MG; ; IV, 80 MG; ; IV
     Route: 042
     Dates: start: 20070205
  5. ETOPOSIDE [Suspect]
     Indication: ASTROCYTOMA
     Dosage: 80 MG; ; IV, 80 MG; ; IV
     Route: 042
     Dates: start: 20070528
  6. RANITIDINE [Concomitant]
  7. CODEINE SUL TAB [Concomitant]
  8. SEPTRA [Concomitant]
  9. VITAMIN D [Concomitant]
  10. ONDANSETRON [Concomitant]
  11. MORPHINE [Concomitant]
  12. ATIVAN [Concomitant]
  13. GRAVOL TAB [Concomitant]

REACTIONS (9)
  - ABDOMINAL PAIN [None]
  - ASTHENIA [None]
  - BACK PAIN [None]
  - GASTROENTERITIS [None]
  - LYMPHOPENIA [None]
  - NAUSEA [None]
  - ORAL INTAKE REDUCED [None]
  - PAIN IN EXTREMITY [None]
  - VOMITING [None]
